FAERS Safety Report 24156595 (Version 1)
Quarter: 2024Q3

REPORT INFORMATION
  Report Type: Spontaneous
  Country: BR (occurrence: BR)
  Receive Date: 20240731
  Receipt Date: 20240731
  Transmission Date: 20241016
  Serious: Yes (Other)
  Sender: UCB
  Company Number: BR-UCBSA-2024036986

PATIENT
  Sex: Female

DRUGS (8)
  1. NEUPRO [Suspect]
     Active Substance: ROTIGOTINE
     Indication: Hepatic cirrhosis
     Dosage: 2 MG
     Route: 062
     Dates: start: 202312
  2. NEUPRO [Suspect]
     Active Substance: ROTIGOTINE
     Indication: Hepatic encephalopathy
     Dosage: 3 MG
     Route: 062
  3. NEUPRO [Suspect]
     Active Substance: ROTIGOTINE
     Indication: Off label use
     Dosage: 4 MG
     Route: 062
  4. NEUPRO [Suspect]
     Active Substance: ROTIGOTINE
     Dosage: 5 MG
     Route: 062
  5. NEUPRO [Suspect]
     Active Substance: ROTIGOTINE
     Dosage: 8 MG
     Route: 062
  6. NEUPRO [Suspect]
     Active Substance: ROTIGOTINE
     Dosage: 9 MG
     Route: 062
  7. VENLAFAXINE HYDROCHLORIDE [Concomitant]
     Active Substance: VENLAFAXINE HYDROCHLORIDE
     Indication: Anxiety
  8. ESOMEPRAZOLE [Concomitant]
     Active Substance: ESOMEPRAZOLE
     Indication: Product used for unknown indication

REACTIONS (5)
  - Drug dependence [Unknown]
  - Drug hypersensitivity [Unknown]
  - Application site erythema [Recovering/Resolving]
  - Product availability issue [Unknown]
  - Off label use [Unknown]
